FAERS Safety Report 10912033 (Version 1)
Quarter: 2015Q1

REPORT INFORMATION
  Report Type: Spontaneous
  Country: US (occurrence: None)
  Receive Date: 20150310
  Receipt Date: 20150310
  Transmission Date: 20150721
  Serious: Yes (Hospitalization, Disabling)
  Sender: FDA-Public Use
  Company Number: None

PATIENT
  Age: 18 Year
  Sex: Female
  Weight: 90.72 kg

DRUGS (2)
  1. ZOFRAN [Suspect]
     Active Substance: ONDANSETRON HYDROCHLORIDE
     Indication: NAUSEA
     Route: 048
     Dates: start: 20090302, end: 20091101
  2. PRENATALS [Concomitant]

REACTIONS (2)
  - Maternal drugs affecting foetus [None]
  - Abnormal behaviour [None]

NARRATIVE: CASE EVENT DATE: 20150309
